FAERS Safety Report 9531202 (Version 1)
Quarter: 2013Q3

REPORT INFORMATION
  Report Type: Spontaneous
  Country: US (occurrence: US)
  Receive Date: 20130918
  Receipt Date: 20130918
  Transmission Date: 20140515
  Serious: Yes (Hospitalization)
  Sender: FDA-Public Use
  Company Number: US-ASTRAZENECA-2013SE68496

PATIENT
  Age: 61 Year
  Sex: Female
  Weight: 140.6 kg

DRUGS (14)
  1. METOPROLOL [Suspect]
     Indication: BLOOD PRESSURE ABNORMAL
     Route: 048
  2. PRILOSEC [Suspect]
     Indication: GASTROOESOPHAGEAL REFLUX DISEASE
     Route: 048
     Dates: start: 1991, end: 2011
  3. PRILOSEC OTC [Suspect]
     Indication: GASTROOESOPHAGEAL REFLUX DISEASE
     Route: 048
  4. GLIMEPRIRIDE [Concomitant]
     Indication: DIABETES MELLITUS
     Route: 048
  5. SYNTHROID [Concomitant]
     Indication: THYROID DISORDER
     Route: 048
  6. ALLOPURINOL [Concomitant]
     Indication: GOUT
     Route: 048
  7. RAMAPRIL [Concomitant]
     Indication: BLOOD PRESSURE ABNORMAL
  8. CLONIDINE [Concomitant]
     Indication: BLOOD PRESSURE ABNORMAL
  9. LASIX [Concomitant]
     Indication: BLOOD PRESSURE ABNORMAL
  10. LOSARTAN [Concomitant]
     Indication: BLOOD PRESSURE ABNORMAL
  11. COZAAR [Concomitant]
     Indication: BLOOD PRESSURE ABNORMAL
  12. SINGULAIR [Concomitant]
     Indication: MULTIPLE ALLERGIES
  13. OXYCODONE [Concomitant]
     Indication: ARTHRITIS
     Dosage: PRN
  14. SOMETHING FOR CHOLESTEROL [Concomitant]
     Indication: BLOOD CHOLESTEROL ABNORMAL

REACTIONS (6)
  - Chest pain [Unknown]
  - Gout [Unknown]
  - Type 2 diabetes mellitus [Unknown]
  - Blood cholesterol increased [Unknown]
  - Hypothyroidism [Unknown]
  - Arthralgia [Unknown]
